FAERS Safety Report 6091551-5 (Version None)
Quarter: 2009Q1

REPORT INFORMATION
  Report Type: 
  Country: None (occurrence: None)
  Receive Date: 20090225
  Receipt Date: 20080304
  Transmission Date: 20090719
  Serious: No
  Sender: FDA-Public Use
  Company Number: A0595304A

PATIENT
  Age: 17 Year
  Sex: Male

DRUGS (3)
  1. VALTREX [Suspect]
     Dosage: 500MG PER DAY
     Route: 048
     Dates: start: 20050601
  2. CALCIUM [Concomitant]
  3. MULTI-VITAMIN [Concomitant]

REACTIONS (4)
  - MECHANICAL URTICARIA [None]
  - PRURITUS [None]
  - RASH [None]
  - URTICARIA [None]
